FAERS Safety Report 17535206 (Version 3)
Quarter: 2020Q4

REPORT INFORMATION
  Report Type: Spontaneous
  Country: US (occurrence: US)
  Receive Date: 20200312
  Receipt Date: 20201027
  Transmission Date: 20210113
  Serious: No
  Sender: FDA-Public Use
  Company Number: US-AKCEA THERAPEUTICS-2019IS001565

PATIENT
  Age: 64 Year
  Sex: Male

DRUGS (5)
  1. GABAPENTIN. [Concomitant]
     Active Substance: GABAPENTIN
     Route: 048
  2. TEGSEDI [Suspect]
     Active Substance: INOTERSEN SODIUM
     Indication: HEREDITARY NEUROPATHIC AMYLOIDOSIS
     Route: 058
     Dates: start: 20190401, end: 2019
  3. ISSD (INTEGRATED SYRINGE SAFETY DEVICE) [Suspect]
     Active Substance: DEVICE
  4. DIFLUNISAL. [Concomitant]
     Active Substance: DIFLUNISAL
     Route: 048
  5. TEGSEDI [Suspect]
     Active Substance: INOTERSEN SODIUM
     Route: 058

REACTIONS (4)
  - Injection site reaction [Recovered/Resolved]
  - Urine protein/creatinine ratio increased [Not Recovered/Not Resolved]
  - Platelet count decreased [Not Recovered/Not Resolved]
  - Injection site pain [Recovered/Resolved]

NARRATIVE: CASE EVENT DATE: 2019
